FAERS Safety Report 6624833-6 (Version None)
Quarter: 2010Q1

REPORT INFORMATION
  Report Type: 
  Country: None (occurrence: None)
  Receive Date: 20100223
  Receipt Date: 20091104
  Transmission Date: 20100710
  Serious: No
  Sender: FDA-Public Use
  Company Number: 8054207

PATIENT
  Sex: Female
  Weight: 88.6 kg

DRUGS (3)
  1. CERTOLIZUMAB PEGOL [Suspect]
     Indication: CROHN'S DISEASE
     Dosage: 400 MG 1X/MONTH, 400 MG SUBCUTANEOUS
     Route: 058
     Dates: start: 20090801
  2. ATIVAN [Concomitant]
  3. VICODIN [Concomitant]

REACTIONS (2)
  - EYE INFECTION STAPHYLOCOCCAL [None]
  - UPPER RESPIRATORY TRACT INFECTION [None]
